FAERS Safety Report 8293836-0 (Version None)
Quarter: 2012Q2

REPORT INFORMATION
  Report Type: 
  Country: None (occurrence: None)
  Receive Date: 20120418
  Receipt Date: 20120404
  Transmission Date: 20120825
  Serious: Yes (Other)
  Sender: FDA-Public Use
  Company Number: GB-RANBAXY-2012R1-55503

PATIENT
  Age: 57 Year
  Sex: Male

DRUGS (4)
  1. VENLAFAXINE [Concomitant]
     Indication: DEPRESSION
     Dosage: UNK
     Route: 048
     Dates: start: 20090101
  2. LITHIUM CARBONATE [Concomitant]
     Indication: DEPRESSION
     Dosage: UNK
     Route: 048
     Dates: start: 20050101, end: 20111101
  3. QUETIAPINE [Concomitant]
     Indication: PRODUCT USED FOR UNKNOWN INDICATION
     Dosage: UNK
     Route: 048
     Dates: start: 20090101, end: 20111101
  4. RISPERIDONE [Suspect]
     Indication: DEPRESSION
     Dosage: 2 MG, BID
     Route: 048
     Dates: start: 20111101

REACTIONS (1)
  - ASTHMA [None]
